FAERS Safety Report 9302878 (Version 1)
Quarter: 2013Q2

REPORT INFORMATION
  Report Type: Spontaneous
  Country: CA (occurrence: CA)
  Receive Date: 20130522
  Receipt Date: 20130522
  Transmission Date: 20140414
  Serious: Yes (Other)
  Sender: FDA-Public Use
  Company Number: CA-ASTELLAS-2013US005224

PATIENT
  Age: 63 Year
  Sex: Female
  Weight: 91 kg

DRUGS (11)
  1. MYRBETRIQ [Suspect]
     Indication: HYPERTONIC BLADDER
     Dosage: 25 MG, UID/QD
     Route: 048
     Dates: start: 20130412, end: 201304
  2. MYRBETRIQ [Suspect]
     Dosage: 25 MG, UID/QD
     Route: 048
     Dates: start: 2013
  3. LORAZEPAM [Concomitant]
     Indication: ANXIETY
     Dosage: 1 MG, UNKNOWN/D
     Route: 065
  4. FLOVENT [Concomitant]
     Indication: ASTHMA
     Dosage: 250 UG, UNKNOWN/D
     Route: 065
  5. ELEVAL [Concomitant]
     Indication: NEUROPATHY PERIPHERAL
     Dosage: 100 MG, UID/QD
     Route: 048
     Dates: start: 2013
  6. TELMIFEL [Concomitant]
     Indication: CARDIAC DISORDER
     Dosage: 80 MG, UID/QD
     Route: 048
     Dates: start: 2003
  7. METFORMIN [Concomitant]
     Indication: DIABETES MELLITUS
     Dosage: 1000 MG, UID/QD
     Route: 048
     Dates: start: 2003
  8. ATENOL [Concomitant]
     Indication: CARDIAC DISORDER
     Dosage: 50 MG, UID/QD
     Route: 048
     Dates: start: 2003
  9. RABEPRAZOLE [Concomitant]
     Indication: GASTRIC DISORDER
     Dosage: 20 MG, UID/QD
     Route: 048
     Dates: start: 2011
  10. PREMARIN [Concomitant]
     Indication: HORMONE REPLACEMENT THERAPY
     Dosage: 0.625 DF, UID/QD
     Route: 048
     Dates: start: 1973
  11. TREMADOL [Concomitant]
     Indication: PRODUCT USED FOR UNKNOWN INDICATION
     Dosage: 100 MG, UNKNOWN/D
     Route: 065

REACTIONS (1)
  - Anuria [Recovered/Resolved]
